FAERS Safety Report 25025344 (Version 1)
Quarter: 2025Q1

REPORT INFORMATION
  Report Type: Report from Study
  Country: CA (occurrence: CA)
  Receive Date: 20250228
  Receipt Date: 20250228
  Transmission Date: 20250408
  Serious: Yes (Other)
  Sender: TAKEDA
  Company Number: CA-TAKEDA-2025TUS020234

PATIENT
  Age: 57 Year
  Sex: Female

DRUGS (5)
  1. VEDOLIZUMAB [Suspect]
     Active Substance: VEDOLIZUMAB
     Indication: Crohn^s disease
  2. VEDOLIZUMAB [Suspect]
     Active Substance: VEDOLIZUMAB
     Dosage: 300 MILLIGRAM, Q6WEEKS
     Dates: start: 20211227
  3. BUDESONIDE [Concomitant]
     Active Substance: BUDESONIDE
  4. ZOPICLONE [Concomitant]
     Active Substance: ZOPICLONE
     Dosage: 0.125 MILLIGRAM, QD
  5. REMERON [Concomitant]
     Active Substance: MIRTAZAPINE
     Dosage: 45 MILLIGRAM, QD

REACTIONS (2)
  - Retinal detachment [Recovered/Resolved]
  - Off label use [Unknown]

NARRATIVE: CASE EVENT DATE: 20211227
